FAERS Safety Report 21143372 (Version 3)
Quarter: 2022Q3

REPORT INFORMATION
  Report Type: Spontaneous
  Country: US (occurrence: US)
  Receive Date: 20220728
  Receipt Date: 20220822
  Transmission Date: 20221027
  Serious: Yes (Other)
  Sender: FDA-Public Use
  Company Number: US-PFIZER INC-202201014416

PATIENT
  Age: 81 Year
  Sex: Female
  Weight: 67.13 kg

DRUGS (2)
  1. PAXLOVID [Suspect]
     Active Substance: NIRMATRELVIR\RITONAVIR
     Indication: COVID-19 treatment
     Dosage: [PF-07321332 300 MG]/[RITONAVIR 100 MG]; 2X/DAY (EVERY 12 HOURS)
     Route: 048
     Dates: start: 20220726
  2. ASTAXANTHIN [Concomitant]
     Active Substance: ASTAXANTHIN
     Indication: Immune system disorder
     Dosage: BEEN TAKING IT FOR A COUPLE OF YEARS

REACTIONS (5)
  - Taste disorder [Not Recovered/Not Resolved]
  - Tongue discolouration [Not Recovered/Not Resolved]
  - Product dose omission issue [Unknown]
  - Fatigue [Unknown]
  - Dysphonia [Unknown]

NARRATIVE: CASE EVENT DATE: 20220726
